FAERS Safety Report 6262127-1 (Version None)
Quarter: 2009Q3

REPORT INFORMATION
  Report Type: 
  Country: None (occurrence: None)
  Receive Date: 20090707
  Receipt Date: 20090707
  Transmission Date: 20100115
  Serious: Yes (Hospitalization)
  Sender: FDA-Public Use
  Company Number: None

PATIENT
  Age: 38 Year
  Sex: Male
  Weight: 76.2043 kg

DRUGS (1)
  1. JANUVIA [Suspect]
     Indication: DIABETES MELLITUS
     Dosage: 100 DAILY PO
     Route: 048
     Dates: start: 20090101, end: 20090515

REACTIONS (14)
  - ANXIETY [None]
  - ARTHROPATHY [None]
  - DEPRESSION [None]
  - DISTURBANCE IN ATTENTION [None]
  - DRUG WITHDRAWAL SYNDROME [None]
  - GASTRIC DISORDER [None]
  - GINGIVAL RECESSION [None]
  - HEART RATE INCREASED [None]
  - IMPAIRED HEALING [None]
  - MENTAL IMPAIRMENT [None]
  - MOOD SWINGS [None]
  - MYALGIA [None]
  - PANIC ATTACK [None]
  - SLEEP DISORDER [None]
